FAERS Safety Report 4540904-2 (Version None)
Quarter: 2004Q4

REPORT INFORMATION
  Report Type: 
  Country: None (occurrence: None)
  Receive Date: 20041229
  Receipt Date: 20030616
  Transmission Date: 20050328
  Serious: Yes (Hospitalization, Disabling)
  Sender: FDA-Public Use
  Company Number: JP-GLAXOSMITHKLINE-B0302395A

PATIENT
  Age: 39 Year
  Sex: Male
  Weight: 76 kg

DRUGS (5)
  1. PAROXETINE HCL [Suspect]
     Indication: PANIC DISORDER
     Dosage: 20MG PER DAY
     Route: 048
     Dates: start: 20020302, end: 20030604
  2. TICLOPIDINE HCL [Suspect]
     Indication: ATRIAL FIBRILLATION
     Dosage: 100MG PER DAY
     Route: 048
     Dates: start: 20011229, end: 20030605
  3. OMEPRAZOLE [Suspect]
     Dosage: 20MG PER DAY
     Route: 048
     Dates: start: 20030322, end: 20030605
  4. ALCOHOL [Concomitant]
     Dosage: 60G PER DAY
     Route: 048
  5. DISOPYRAMIDE [Concomitant]
     Indication: ATRIAL FIBRILLATION
     Dosage: 300MG PER DAY
     Route: 048
     Dates: start: 20011229, end: 20030605

REACTIONS (57)
  - AGITATION [None]
  - AKATHISIA [None]
  - ALANINE AMINOTRANSFERASE INCREASED [None]
  - ALCOHOL WITHDRAWAL SYNDROME [None]
  - ALCOHOLIC LIVER DISEASE [None]
  - AMMONIA INCREASED [None]
  - ANOREXIA [None]
  - ANTIDEPRESSANT DRUG LEVEL ABOVE THERAPEUTIC [None]
  - ASPARTATE AMINOTRANSFERASE INCREASED [None]
  - ATAXIA [None]
  - ATRIAL FIBRILLATION [None]
  - BLOOD ALKALINE PHOSPHATASE INCREASED [None]
  - BLOOD BILIRUBIN INCREASED [None]
  - BLOOD LACTATE DEHYDROGENASE INCREASED [None]
  - BUNDLE BRANCH BLOCK RIGHT [None]
  - CARDIAC FAILURE CONGESTIVE [None]
  - CARDIOACTIVE DRUG LEVEL DECREASED [None]
  - CARDIOMEGALY [None]
  - CHROMATURIA [None]
  - CONDITION AGGRAVATED [None]
  - CONDUCTION DISORDER [None]
  - CONFUSIONAL STATE [None]
  - DISSEMINATED INTRAVASCULAR COAGULATION [None]
  - DRUG LEVEL INCREASED [None]
  - DYSPNOEA [None]
  - DYSPNOEA EXERTIONAL [None]
  - ELECTROCARDIOGRAM QT PROLONGED [None]
  - HEART RATE INCREASED [None]
  - HEPATIC CONGESTION [None]
  - HEPATIC FAILURE [None]
  - HEPATITIS FULMINANT [None]
  - HYPERREFLEXIA [None]
  - HYPONATRAEMIA [None]
  - INCOHERENT [None]
  - LACTIC ACIDOSIS [None]
  - LIVER TENDERNESS [None]
  - MALAISE [None]
  - MULTI-ORGAN FAILURE [None]
  - MYOCLONUS [None]
  - OEDEMA PERIPHERAL [None]
  - OLIGURIA [None]
  - ORTHOPNOEA [None]
  - PALPITATIONS [None]
  - PERIPHERAL COLDNESS [None]
  - PLATELET COUNT DECREASED [None]
  - PULMONARY CONGESTION [None]
  - RENAL FAILURE ACUTE [None]
  - RESPIRATORY RATE INCREASED [None]
  - RESTLESSNESS [None]
  - RHABDOMYOLYSIS [None]
  - SEROTONIN SYNDROME [None]
  - SHOCK [None]
  - SOMNOLENCE [None]
  - TREMOR [None]
  - URINARY BLADDER HAEMORRHAGE [None]
  - VENTRICULAR HYPERTROPHY [None]
  - VENTRICULAR HYPOKINESIA [None]
